FAERS Safety Report 7374783-5 (Version None)
Quarter: 2011Q1

REPORT INFORMATION
  Report Type: 
  Country: None (occurrence: None)
  Receive Date: 20110325
  Receipt Date: 20101213
  Transmission Date: 20110831
  Serious: No
  Sender: FDA-Public Use
  Company Number: US-MYLANLABS-2010S1020460

PATIENT
  Age: 58 Year
  Sex: Male

DRUGS (2)
  1. FENTANYL-100 [Suspect]
     Dosage: Q72HRS
     Route: 062
     Dates: start: 20101030
  2. FENTANYL-100 [Suspect]
     Indication: PAIN
     Route: 062

REACTIONS (3)
  - PAIN [None]
  - DRUG WITHDRAWAL SYNDROME [None]
  - DRUG EFFECT DECREASED [None]
